FAERS Safety Report 13819940 (Version 1)
Quarter: 2017Q3

REPORT INFORMATION
  Report Type: Spontaneous
  Country: NL (occurrence: None)
  Receive Date: 20170731
  Receipt Date: 20170731
  Transmission Date: 20171127
  Serious: Yes (Hospitalization)
  Sender: FDA-Public Use
  Company Number: 20171029

PATIENT
  Age: 46 Year
  Sex: Female

DRUGS (8)
  1. NEXIUM(ESOMEPRAZOLE MAGNESIUM) [Concomitant]
  2. ETORICOXIB [Concomitant]
     Active Substance: ETORICOXIB
  3. METOJECT(METHOTREXATE SODIUM) [Concomitant]
  4. GOLIMUMAB [Concomitant]
     Active Substance: GOLIMUMAB
  5. EUTHYROX(LEVOTHYROXINE SODIUM) [Concomitant]
  6. FERINJECT [Suspect]
     Active Substance: FERRIC CARBOXYMALTOSE
     Indication: IRON DEFICIENCY ANAEMIA
     Dates: start: 20170614
  7. FOLIUMZUUR(FOLIC ACID) [Concomitant]
  8. SALOFALK ZETPIL(AMINOSALICYLIC ACID) [Concomitant]

REACTIONS (12)
  - Peripheral swelling [None]
  - Urticaria [None]
  - Nausea [None]
  - Dermatitis exfoliative [None]
  - Headache [None]
  - Visual impairment [None]
  - Throat irritation [None]
  - Fall [None]
  - Erythema [None]
  - Asthenia [None]
  - Discomfort [None]
  - Muscular weakness [None]

NARRATIVE: CASE EVENT DATE: 20170623
